FAERS Safety Report 20662812 (Version 1)
Quarter: 2022Q1

REPORT INFORMATION
  Report Type: Spontaneous
  Country: US (occurrence: None)
  Receive Date: 20220331
  Receipt Date: 20220331
  Transmission Date: 20220423
  Serious: Yes (unspecified)
  Sender: FDA-Public Use
  Company Number: None

PATIENT
  Sex: Male

DRUGS (1)
  1. SOTALOL [Suspect]
     Active Substance: SOTALOL
     Indication: Atrial fibrillation
     Dosage: OTHER FREQUENCY : ONCE;?
     Route: 041
     Dates: start: 20220217, end: 20220217

REACTIONS (2)
  - Electrocardiogram QT prolonged [None]
  - Infusion related reaction [None]

NARRATIVE: CASE EVENT DATE: 20220203
